FAERS Safety Report 24524610 (Version 8)
Quarter: 2025Q2

REPORT INFORMATION
  Report Type: Report from Study
  Country: US (occurrence: US)
  Receive Date: 20241019
  Receipt Date: 20250619
  Transmission Date: 20250717
  Serious: Yes (Other)
  Sender: SANOFI AVENTIS
  Company Number: US-SA-2024SA279221

PATIENT
  Age: 18 Year
  Sex: Male

DRUGS (4)
  1. AGALSIDASE BETA [Suspect]
     Active Substance: AGALSIDASE BETA
     Indication: Fabry^s disease
     Dosage: 80 (UNITS NOT PROVIDED), QOW
     Route: 042
     Dates: start: 20240911, end: 2024
  2. AGALSIDASE BETA [Suspect]
     Active Substance: AGALSIDASE BETA
     Dosage: 5 DF, QW
     Route: 042
     Dates: start: 2024, end: 20241113
  3. AGALSIDASE BETA [Suspect]
     Active Substance: AGALSIDASE BETA
     Dosage: INCREASE 5 MG, QW
     Route: 042
  4. AGALSIDASE BETA [Suspect]
     Active Substance: AGALSIDASE BETA
     Dosage: 35 MG, QW
     Route: 042

REACTIONS (15)
  - Loss of consciousness [Recovering/Resolving]
  - Paranasal sinus discomfort [Recovering/Resolving]
  - Throat irritation [Recovering/Resolving]
  - Lip swelling [Recovering/Resolving]
  - Hypotension [Recovering/Resolving]
  - Chills [Recovered/Resolved]
  - Paraesthesia [Recovered/Resolved]
  - Asthenia [Recovered/Resolved]
  - Fatigue [Recovered/Resolved]
  - Infusion related reaction [Recovering/Resolving]
  - Drug specific antibody present [Recovered/Resolved]
  - Food poisoning [Recovered/Resolved]
  - Vomiting [Recovered/Resolved]
  - Off label use [Unknown]
  - Inappropriate schedule of product administration [Unknown]

NARRATIVE: CASE EVENT DATE: 20240101
